FAERS Safety Report 4927660-0 (Version None)
Quarter: 2006Q1

REPORT INFORMATION
  Report Type: 
  Country: None (occurrence: None)
  Receive Date: 20060228
  Receipt Date: 20060125
  Transmission Date: 20060701
  Serious: Yes (Hospitalization)
  Sender: FDA-Public Use
  Company Number: JP-MERCK-0602USA00027

PATIENT
  Age: 54 Year
  Sex: Female

DRUGS (11)
  1. PEPCID [Suspect]
     Indication: GASTRIC ULCER
     Route: 048
     Dates: start: 20060107, end: 20060113
  2. PROGRAF [Suspect]
     Indication: RENAL TRANSPLANT
     Route: 048
     Dates: start: 20051126
  3. PROGRAF [Suspect]
     Route: 051
     Dates: start: 20051124, end: 20051125
  4. CELLCEPT [Suspect]
     Indication: RENAL TRANSPLANT
     Route: 048
     Dates: start: 20051124, end: 20060113
  5. SIMULECT [Concomitant]
     Indication: RENAL TRANSPLANT
     Route: 051
     Dates: start: 20051124, end: 20051127
  6. PREDONINE [Concomitant]
     Indication: RENAL TRANSPLANT
     Route: 048
     Dates: start: 20051124
  7. PREDONINE [Concomitant]
     Route: 048
     Dates: start: 20060119
  8. TAKEPRON [Concomitant]
     Indication: GASTRIC ULCER
     Route: 048
     Dates: start: 20051124, end: 20060105
  9. CALCIUM CARBONATE [Concomitant]
     Indication: GLOMERULONEPHRITIS CHRONIC
     Route: 048
     Dates: start: 20051124
  10. LASIX [Concomitant]
     Indication: RENAL TRANSPLANT
     Route: 048
     Dates: start: 20051224
  11. FLUITRAN [Concomitant]
     Indication: RENAL TRANSPLANT
     Route: 048
     Dates: start: 20051229

REACTIONS (4)
  - ANAEMIA [None]
  - ILEUS [None]
  - PLATELET COUNT DECREASED [None]
  - WHITE BLOOD CELL COUNT DECREASED [None]
